FAERS Safety Report 5053342-3 (Version None)
Quarter: 2006Q3

REPORT INFORMATION
  Report Type: 
  Country: None (occurrence: None)
  Receive Date: 20060712
  Receipt Date: 20060629
  Transmission Date: 20061208
  Serious: Yes (Other)
  Sender: FDA-Public Use
  Company Number: 2006082502

PATIENT
  Age: 71 Year
  Sex: Male

DRUGS (12)
  1. LYRICA [Suspect]
     Indication: NEURALGIA
     Dosage: 150 MG (75 MG, 2 IN 1 D), ORAL
     Route: 048
     Dates: start: 20060622, end: 20060624
  2. ZANAFLEX [Suspect]
     Indication: NEURALGIA
     Dosage: 16 MG (8 MG), ORAL
     Route: 048
     Dates: start: 20060613, end: 20060622
  3. ACTONEL [Concomitant]
  4. CILAZAPRIL (CILAZAPRIL) [Concomitant]
  5. PANTOLOC (PANTOPRAZOLE) [Concomitant]
  6. COMTAN [Concomitant]
  7. DETROL LA [Concomitant]
  8. CLONAZEPAM [Concomitant]
  9. EZETROL (EZETIMIBE) [Concomitant]
  10. SINEMET CR [Concomitant]
  11. SEROQUET (QUETIAPINE FUMARATE) [Concomitant]
  12. OXYCODONE AND ACETAMINOPHEN [Concomitant]

REACTIONS (4)
  - ABDOMINAL PAIN [None]
  - CONVULSION [None]
  - DELIRIUM [None]
  - FALL [None]
